FAERS Safety Report 5356165-0 (Version None)
Quarter: 2007Q2

REPORT INFORMATION
  Report Type: 
  Country: None (occurrence: None)
  Receive Date: 20070613
  Receipt Date: 20070531
  Transmission Date: 20071010
  Serious: Yes (Other)
  Sender: FDA-Public Use
  Company Number: JP-PURDUE-MAG_2007_0000543

PATIENT
  Age: 71 Year
  Sex: Male

DRUGS (56)
  1. OXYCODONE HCL [Suspect]
     Indication: CANCER PAIN
     Dosage: 5 MG, DAILY
     Route: 048
     Dates: start: 20060419, end: 20060425
  2. OXYCODONE HCL [Suspect]
     Dosage: 10 MG, DAILY
     Route: 048
     Dates: start: 20060313, end: 20060418
  3. OXYCODONE HCL [Suspect]
     Dosage: 15 MG, DAILY
     Route: 048
     Dates: start: 20051129, end: 20060312
  4. OXYCODONE HCL [Suspect]
     Dosage: 10 MG, DAILY
     Route: 048
     Dates: start: 20050601, end: 20051128
  5. TAXOL [Suspect]
     Indication: LUNG NEOPLASM MALIGNANT
     Dosage: 370 MG, DAILY
     Route: 065
     Dates: start: 20050810, end: 20050810
  6. TAXOL [Suspect]
     Dosage: 373 MG, DAILY
     Route: 065
     Dates: start: 20050713, end: 20050713
  7. TAXOL [Suspect]
     Dosage: 390 MG, DAILY
     Route: 065
     Dates: start: 20050622, end: 20050622
  8. TAXOL [Suspect]
     Dosage: 319 MG, DAILY
     Route: 065
     Dates: start: 20050921, end: 20050921
  9. TAXOL [Suspect]
     Dosage: 317 MG, DAILY
     Route: 065
     Dates: start: 20051012, end: 20051012
  10. PARAPLATIN [Suspect]
     Indication: LUNG NEOPLASM MALIGNANT
     Dosage: 535 MG, DAILY
     Route: 065
     Dates: start: 20050622, end: 20050622
  11. PARAPLATIN [Suspect]
     Dosage: 491 MG, DAILY
     Route: 065
     Dates: start: 20050713, end: 20050713
  12. PARAPLATIN [Suspect]
     Dosage: 432 MG, DAILY
     Route: 065
     Dates: start: 20050810, end: 20050810
  13. PARAPLATIN [Suspect]
     Dosage: 268 MG, DAILY
     Route: 065
     Dates: start: 20051012, end: 20051012
  14. PARAPLATIN [Suspect]
     Dosage: 270 MG, DAILY
     Route: 065
     Dates: start: 20050921, end: 20050921
  15. LOXOPROFEN SODIUM [Concomitant]
     Indication: CANCER PAIN
     Dosage: 180 MG, DAILY
     Route: 048
     Dates: start: 20050523
  16. MUCOSTA [Concomitant]
     Indication: PROPHYLAXIS AGAINST GASTROINTESTINAL ULCER
     Dosage: 300 MG, DAILY
     Route: 048
     Dates: start: 20050523
  17. NOVAMIN [Concomitant]
     Indication: PROPHYLAXIS OF NAUSEA AND VOMITING
     Dosage: 15 MG, DAILY
     Route: 048
     Dates: start: 20050523
  18. PURSENNID [Concomitant]
     Indication: CONSTIPATION PROPHYLAXIS
     Dosage: 24 MG, DAILY
     Route: 048
     Dates: start: 20050523
  19. RESTAMIN [Concomitant]
     Indication: ALLERGY PROPHYLAXIS
     Dosage: 50 MG, DAILY
     Route: 048
     Dates: start: 20050622, end: 20050622
  20. RESTAMIN [Concomitant]
     Dosage: 50 MG, DAILY
     Route: 048
     Dates: start: 20050713, end: 20050713
  21. RESTAMIN [Concomitant]
     Dosage: 50 MG, DAILY
     Route: 048
     Dates: start: 20050810, end: 20050814
  22. RESTAMIN [Concomitant]
     Dosage: 50 MG, DAILY
     Route: 048
     Dates: start: 20050831, end: 20050831
  23. RESTAMIN [Concomitant]
     Dosage: 50 MG, DAILY
     Route: 048
     Dates: start: 20050921, end: 20050921
  24. RESTAMIN [Concomitant]
     Dosage: 50 MG, DAILY
     Route: 048
     Dates: start: 20051012, end: 20051012
  25. DECADRON [Concomitant]
     Indication: PROPHYLAXIS OF NAUSEA AND VOMITING
     Dosage: 20 MG, DAILY
     Route: 065
     Dates: start: 20050622, end: 20050622
  26. DECADRON [Concomitant]
     Dosage: 5 MG, DAILY
     Route: 048
     Dates: start: 20050712, end: 20050712
  27. DECADRON [Concomitant]
     Dosage: 20 MG, DAILY
     Route: 065
     Dates: start: 20050713, end: 20050713
  28. DECADRON [Concomitant]
     Dosage: 20 MG, DAILY
     Route: 065
     Dates: start: 20050810, end: 20050810
  29. DECADRON [Concomitant]
     Dosage: 5 MG, DAILY
     Route: 048
     Dates: start: 20050830, end: 20050830
  30. DECADRON [Concomitant]
     Dosage: 20 MG, DAILY
     Route: 065
     Dates: start: 20050831, end: 20050831
  31. DECADRON [Concomitant]
     Dosage: 20 MG, DAILY
     Route: 065
     Dates: start: 20050921, end: 20050921
  32. DECADRON [Concomitant]
     Dosage: 20 MG, DAILY
     Route: 065
     Dates: start: 20051012, end: 20051012
  33. DECADRON [Concomitant]
     Dosage: 8 MG, DAILY
     Route: 065
     Dates: start: 20051214, end: 20051214
  34. DECADRON [Concomitant]
     Dosage: 8 MG, DAILY
     Route: 065
     Dates: start: 20060104, end: 20060104
  35. GASTER [Concomitant]
     Indication: PROPHYLAXIS AGAINST GASTROINTESTINAL ULCER
     Dosage: 20 MG, DAILY
     Route: 065
     Dates: start: 20050622, end: 20050622
  36. GASTER [Concomitant]
     Dosage: 20 MG, DAILY
     Route: 065
     Dates: start: 20050713, end: 20050713
  37. GASTER [Concomitant]
     Dosage: 20 MG, DAILY
     Route: 065
     Dates: start: 20050810, end: 20050810
  38. GASTER [Concomitant]
     Dosage: 20 MG, DAILY
     Route: 065
     Dates: start: 20050921, end: 20050921
  39. GASTER [Concomitant]
     Dosage: 20 MG, DAILY
     Route: 065
     Dates: start: 20051012, end: 20051012
  40. KYTRIL [Concomitant]
     Indication: PROPHYLAXIS OF NAUSEA AND VOMITING
     Dosage: 3 MG, DAILY
     Route: 065
     Dates: start: 20050622, end: 20050622
  41. KYTRIL [Concomitant]
     Dosage: 3 MG, DAILY
     Route: 048
     Dates: start: 20051214, end: 20051214
  42. KYTRIL [Concomitant]
     Dosage: 2 MG, DAILY
     Route: 048
     Dates: start: 20051226, end: 20051228
  43. KYTRIL [Concomitant]
     Dosage: 3 MG, DAILY
     Route: 065
     Dates: start: 20060104, end: 20060104
  44. GOSHAJINKIGAN [Concomitant]
     Indication: PROPHYLAXIS
     Dosage: 3 DF, DAILY
     Route: 048
     Dates: start: 20050623, end: 20051227
  45. NAUZELIN [Concomitant]
     Indication: PROPHYLAXIS OF NAUSEA AND VOMITING
     Dosage: 30 MG, DAILY
     Route: 048
     Dates: start: 20050627
  46. STROCAIN [Concomitant]
     Indication: HICCUPS
     Dosage: 15 MG, DAILY
     Route: 048
     Dates: start: 20050630
  47. MAGNESIUM OXIDE [Concomitant]
     Indication: CONSTIPATION PROPHYLAXIS
     Dosage: 1980 MG, DAILY
     Route: 048
     Dates: start: 20050704, end: 20060201
  48. SHAKUYAKUKANZOUTOU [Concomitant]
     Indication: PROPHYLAXIS
     Dosage: 3 DF, DAILY
     Route: 048
     Dates: start: 20050720, end: 20051227
  49. CYANOCOBALAMIN [Concomitant]
     Indication: PROPHYLAXIS
     Dosage: 750 MCG, DAILY
     Route: 048
     Dates: start: 20050815, end: 20051227
  50. MOBIC [Concomitant]
     Indication: CANCER PAIN
     Dosage: 10 MG, DAILY
     Route: 048
     Dates: start: 20051129
  51. DOCETAXEL [Concomitant]
     Indication: LUNG NEOPLASM MALIGNANT
     Dosage: 102 MG, DAILY
     Route: 065
     Dates: start: 20051214, end: 20051214
  52. DOCETAXEL [Concomitant]
     Dosage: 80 MG, DAILY
     Route: 065
     Dates: start: 20060104, end: 20060104
  53. GRAN [Concomitant]
     Indication: NEUTROPENIA
     Dosage: 150 MCG, DAILY
     Route: 065
     Dates: start: 20051221, end: 20051223
  54. GASCON [Concomitant]
     Indication: ABDOMINAL DISTENSION
     Dosage: 120 MG, DAILY
     Route: 048
     Dates: start: 20060130
  55. TS-1 [Concomitant]
     Indication: LUNG NEOPLASM MALIGNANT
     Dosage: 120 MG, DAILY
     Route: 048
     Dates: start: 20060302, end: 20060329
  56. TS-1 [Concomitant]
     Dosage: 120 MG, DAILY
     Route: 048
     Dates: start: 20060117, end: 20060216

REACTIONS (6)
  - ABDOMINAL DISTENSION [None]
  - ANXIETY [None]
  - DIARRHOEA [None]
  - NEUTROPENIA [None]
  - PNEUMONIA [None]
  - SOMNOLENCE [None]
